FAERS Safety Report 9137354 (Version 1)
Quarter: 2013Q1

REPORT INFORMATION
  Report Type: Spontaneous
  Country: US (occurrence: US)
  Receive Date: 20130219
  Receipt Date: 20130219
  Transmission Date: 20140127
  Serious: No
  Sender: FDA-Public Use
  Company Number: US-BRISTOL-MYERS SQUIBB COMPANY-16505638

PATIENT
  Age: 54 Year
  Sex: Female

DRUGS (1)
  1. ABATACEPT SUBQ INJECTION 125MG/ML [Suspect]
     Indication: RHEUMATOID ARTHRITIS
     Dosage: LAST DOSE ON 18APR2012
     Route: 058
     Dates: start: 20120404

REACTIONS (5)
  - Headache [Unknown]
  - Arthralgia [Unknown]
  - Anxiety [Unknown]
  - Feeling jittery [Unknown]
  - Pain in extremity [Recovering/Resolving]
